FAERS Safety Report 7365775-0 (Version None)
Quarter: 2011Q1

REPORT INFORMATION
  Report Type: 
  Country: None (occurrence: None)
  Receive Date: 20110322
  Receipt Date: 20110314
  Transmission Date: 20110831
  Serious: Yes (Hospitalization)
  Sender: FDA-Public Use
  Company Number: US-TEVA-271426USA

PATIENT
  Sex: Male
  Weight: 69.462 kg

DRUGS (16)
  1. DEXAMETHASONE [Concomitant]
     Dates: start: 20110301
  2. PROCHLORPERAZINE EDISYLATE [Concomitant]
     Dates: start: 20110301
  3. PREDNISONE [Concomitant]
     Dates: start: 20090508
  4. CISPLATIN [Suspect]
     Indication: HEAD AND NECK CANCER
     Route: 042
     Dates: start: 20110301, end: 20110301
  5. DIPHENHYDRAMINE HYDROCHLORIDE [Concomitant]
     Dates: start: 20110301
  6. FLUOROURACIL [Suspect]
     Indication: HEAD AND NECK CANCER
     Route: 042
     Dates: start: 20110304, end: 20110304
  7. PALONOSETRON HYDROCHLORIDE [Concomitant]
     Dates: start: 20110301
  8. FOLIC ACID [Concomitant]
     Dates: start: 20080527
  9. INVESTIGATIONAL DRUG [Suspect]
     Indication: HEAD AND NECK CANCER
     Route: 042
     Dates: start: 20110301, end: 20110301
  10. HYDROMORPHONE HCL [Concomitant]
     Dates: start: 20110225
  11. ONDANSETRON [Concomitant]
     Dates: start: 20110301
  12. RANITIDINE HYDROCHLORIDE [Concomitant]
     Dates: start: 20110301
  13. WARFARIN SODIUM [Concomitant]
     Dates: start: 20100624
  14. SANCUSO [Concomitant]
     Route: 062
     Dates: start: 20110301
  15. LEFLUNOMIDE [Concomitant]
     Dates: start: 20090508
  16. ESCITALOPRAM OXALATE [Concomitant]
     Dates: start: 20090318

REACTIONS (2)
  - HYPOXIA [None]
  - RESPIRATORY DISTRESS [None]
